FAERS Safety Report 15679933 (Version 2)
Quarter: 2018Q4

REPORT INFORMATION
  Report Type: Spontaneous
  Country: BR (occurrence: BR)
  Receive Date: 20181203
  Receipt Date: 20181211
  Transmission Date: 20190205
  Serious: No
  Sender: FDA-Public Use
  Company Number: BR-B.I. PHARMACEUTICALS,INC./RIDGEFIELD-2018-BI-058013

PATIENT
  Age: 57 Year
  Sex: Female

DRUGS (8)
  1. JARDIANCE [Suspect]
     Active Substance: EMPAGLIFLOZIN
     Indication: TYPE 2 DIABETES MELLITUS
     Route: 065
     Dates: start: 201807
  2. ROSUVASTATINA [Concomitant]
     Active Substance: ROSUVASTATIN
     Indication: BLOOD CHOLESTEROL
  3. DIOVAN [Concomitant]
     Active Substance: VALSARTAN
     Indication: HYPERTENSION
     Route: 048
     Dates: start: 2012
  4. PURAN [Concomitant]
     Active Substance: LEVOTHYROXINE SODIUM
     Route: 048
     Dates: start: 2011
  5. GLIFAGE [Concomitant]
     Active Substance: METFORMIN HYDROCHLORIDE
     Indication: TYPE 2 DIABETES MELLITUS
     Route: 048
     Dates: start: 201807
  6. CALCIUM [Concomitant]
     Active Substance: CALCIUM
     Indication: OSTEOPATHIC TREATMENT
     Route: 048
     Dates: start: 2005
  7. ROSUVASTATINA [Concomitant]
     Active Substance: ROSUVASTATIN
     Indication: BLOOD TRIGLYCERIDES
     Route: 048
     Dates: start: 2005
  8. PURAN [Concomitant]
     Active Substance: LEVOTHYROXINE SODIUM
     Indication: THYROID OPERATION
     Route: 048
     Dates: start: 2011

REACTIONS (2)
  - Urinary tract infection [Recovered/Resolved]
  - Urinary tract infection [Recovered/Resolved]

NARRATIVE: CASE EVENT DATE: 201808
